FAERS Safety Report 14240499 (Version 2)
Quarter: 2017Q4

REPORT INFORMATION
  Report Type: Spontaneous
  Country: FR (occurrence: FR)
  Receive Date: 20171130
  Receipt Date: 20171205
  Transmission Date: 20180321
  Serious: Yes (Hospitalization)
  Sender: FDA-Public Use
  Company Number: FR-JNJFOC-20171124453

PATIENT
  Age: 52 Year
  Sex: Male

DRUGS (19)
  1. ROCEPHINE [Suspect]
     Active Substance: CEFTRIAXONE SODIUM
     Indication: RESPIRATORY TRACT INFECTION
     Route: 042
     Dates: start: 20170912, end: 20170913
  2. CORDARONE [Suspect]
     Active Substance: AMIODARONE HYDROCHLORIDE
     Indication: VENTRICULAR ARRHYTHMIA
     Route: 042
     Dates: start: 20170912, end: 20170914
  3. ZOLOFT [Suspect]
     Active Substance: SERTRALINE HYDROCHLORIDE
     Indication: BIPOLAR DISORDER
     Route: 048
     Dates: start: 20171003
  4. TERCIAN [Suspect]
     Active Substance: CYAMEMAZINE
     Indication: BIPOLAR DISORDER
     Route: 048
     Dates: start: 20171003
  5. AMIKACIN [Suspect]
     Active Substance: AMIKACIN
     Indication: RESPIRATORY TRACT INFECTION
     Dosage: 3 DOSES
     Route: 042
     Dates: start: 20171016, end: 20171019
  6. NOCTAMIDE [Concomitant]
     Active Substance: LORMETAZEPAM
     Route: 065
  7. RISPERDAL [Suspect]
     Active Substance: RISPERIDONE
     Indication: BIPOLAR DISORDER
     Route: 048
     Dates: start: 20171002
  8. RISPERDAL [Suspect]
     Active Substance: RISPERIDONE
     Indication: BIPOLAR DISORDER
     Route: 048
     Dates: start: 20170902, end: 201709
  9. ROVAMYCIN [Suspect]
     Active Substance: SPIRAMYCIN
     Indication: RESPIRATORY TRACT INFECTION
     Route: 042
     Dates: start: 20170910, end: 20171001
  10. AMIKACIN [Suspect]
     Active Substance: AMIKACIN
     Indication: RESPIRATORY TRACT INFECTION
     Route: 042
     Dates: start: 20170925, end: 20170927
  11. TIENAM [Concomitant]
     Active Substance: CILASTATIN SODIUM\IMIPENEM
     Indication: PNEUMONIA
     Route: 065
     Dates: start: 20171016
  12. ZYVOXID [Suspect]
     Active Substance: LINEZOLID
     Indication: RESPIRATORY TRACT INFECTION
     Route: 042
     Dates: start: 20170926, end: 20171002
  13. ZOLOFT [Suspect]
     Active Substance: SERTRALINE HYDROCHLORIDE
     Indication: BIPOLAR DISORDER
     Route: 048
     Dates: end: 201709
  14. TAVANIC [Suspect]
     Active Substance: LEVOFLOXACIN
     Indication: RESPIRATORY TRACT INFECTION
     Route: 042
     Dates: start: 20170915, end: 20170925
  15. CEFTAZIDIME. [Suspect]
     Active Substance: CEFTAZIDIME
     Indication: RESPIRATORY TRACT INFECTION
     Route: 042
     Dates: start: 20171019, end: 20171019
  16. TERCIAN [Suspect]
     Active Substance: CYAMEMAZINE
     Indication: BIPOLAR DISORDER
     Route: 048
     Dates: end: 201709
  17. PARKINANE LP [Concomitant]
     Active Substance: TRIHEXYPHENIDYL HYDROCHLORIDE
     Dosage: 0-0-0-1
     Route: 065
  18. AUGMENTIN [Suspect]
     Active Substance: AMOXICILLIN\CLAVULANATE POTASSIUM
     Indication: RESPIRATORY TRACT INFECTION
     Route: 042
     Dates: start: 20170910, end: 20170911
  19. PIPERACILLINE / TAZOBACTAM MYLAN [Suspect]
     Active Substance: PIPERACILLIN SODIUM\TAZOBACTAM SODIUM
     Indication: RESPIRATORY TRACT INFECTION
     Route: 042
     Dates: start: 20170925, end: 20170927

REACTIONS (1)
  - Drug reaction with eosinophilia and systemic symptoms [Recovering/Resolving]

NARRATIVE: CASE EVENT DATE: 20171009
